FAERS Safety Report 15854777 (Version 1)
Quarter: 2019Q1

REPORT INFORMATION
  Report Type: Spontaneous
  Country: US (occurrence: US)
  Receive Date: 20190122
  Receipt Date: 20190122
  Transmission Date: 20190417
  Serious: No
  Sender: FDA-Public Use
  Company Number: US-DSJP-DSU-2019-100868

PATIENT

DRUGS (4)
  1. AMLODIPINE;HYDROCHLOROTHIAZIDE;OLMESARTAN [Suspect]
     Active Substance: AMLODIPINE\HYDROCHLOROTHIAZIDE\OLMESARTAN
     Indication: HYPERTENSION
     Dosage: 1 DF [5/12.5/40 MG], QD
     Route: 048
     Dates: start: 201812
  2. HCTZ [Suspect]
     Active Substance: HYDROCHLOROTHIAZIDE
     Indication: HYPERTENSION
     Dosage: 12.5 MG, QD
     Route: 048
     Dates: start: 2014, end: 201812
  3. OLMESARTAN AG [Suspect]
     Active Substance: OLMESARTAN MEDOXOMIL
     Dosage: 40 MG, QD
     Route: 048
     Dates: start: 2018, end: 201812
  4. OLMESARTAN AG [Suspect]
     Active Substance: OLMESARTAN MEDOXOMIL
     Indication: HYPERTENSION
     Dosage: 20 MG, QD
     Route: 048
     Dates: start: 2017, end: 2018

REACTIONS (8)
  - Dyspnoea [Unknown]
  - Flushing [Unknown]
  - Blood pressure systolic decreased [Unknown]
  - Eye pain [Unknown]
  - Feeling abnormal [Unknown]
  - Restlessness [Unknown]
  - Fatigue [Unknown]
  - Nightmare [Unknown]

NARRATIVE: CASE EVENT DATE: 201812
